FAERS Safety Report 5288424-4 (Version None)
Quarter: 2007Q2

REPORT INFORMATION
  Report Type: 
  Country: None (occurrence: None)
  Receive Date: 20070405
  Receipt Date: 20070402
  Transmission Date: 20071010
  Serious: Yes (Death)
  Sender: FDA-Public Use
  Company Number: US-PURDUE-USA_2005_0019476

PATIENT
  Age: 42 Year
  Sex: Male
  Weight: 89 kg

DRUGS (2)
  1. OXYCONTIN [Suspect]
     Indication: DRUG USE FOR UNKNOWN INDICATION
     Dosage: UNK MG, UNK
     Route: 065
  2. COCAINE [Suspect]
     Indication: DRUG ABUSER
     Dosage: UNK, UNK
     Route: 065

REACTIONS (3)
  - ARTERIOSCLEROSIS CORONARY ARTERY [None]
  - HYPERTROPHIC CARDIOMYOPATHY [None]
  - SUBSTANCE ABUSE [None]
